FAERS Safety Report 4639697-X (Version None)
Quarter: 2005Q2

REPORT INFORMATION
  Report Type: 
  Country: None (occurrence: None)
  Receive Date: 20050406
  Receipt Date: 20050323
  Transmission Date: 20051028
  Serious: Yes (Death)
  Sender: FDA-Public Use
  Company Number: MK200503-0289-1

PATIENT
  Age: 64 Year
  Sex: Male

DRUGS (2)
  1. NEUTROSPEC [Suspect]
     Indication: INFECTION
     Dosage: 22-23 MCI, ONCE, IV
     Route: 042
     Dates: start: 20050318, end: 20050318
  2. NEUTROSPEC [Suspect]
     Indication: SCAN
     Dosage: 22-23 MCI, ONCE, IV
     Route: 042
     Dates: start: 20050318, end: 20050318

REACTIONS (5)
  - CARDIO-RESPIRATORY ARREST [None]
  - CHILLS [None]
  - DYSPNOEA [None]
  - PULMONARY EMBOLISM [None]
  - PYREXIA [None]
